FAERS Safety Report 21417995 (Version 3)
Quarter: 2023Q2

REPORT INFORMATION
  Report Type: Other
  Country: US (occurrence: None)
  Receive Date: 20221006
  Receipt Date: 20230621
  Transmission Date: 20230722
  Serious: Yes (Hospitalization)
  Sender: FDA-Public Use
  Company Number: US-ROCHE-3192013

PATIENT
  Age: 23 Year
  Sex: Female
  Weight: 43.64 kg

DRUGS (3)
  1. EVRYSDI [Suspect]
     Active Substance: RISDIPLAM
     Indication: Spinal muscular atrophy
     Dosage: FORMULATION: LIQUID
     Route: 048
     Dates: start: 20200917
  2. EVRYSDI [Suspect]
     Active Substance: RISDIPLAM
     Dosage: FORMULATION: LIQUID
     Route: 048
     Dates: start: 20200918, end: 20230103
  3. EVRYSDI [Suspect]
     Active Substance: RISDIPLAM
     Dosage: 80/5 ML
     Route: 050

REACTIONS (5)
  - Nephrolithiasis [Not Recovered/Not Resolved]
  - Sepsis [Recovered/Resolved]
  - Kidney contusion [Not Recovered/Not Resolved]
  - Nephrolithiasis [Not Recovered/Not Resolved]
  - Urinary tract infection [Not Recovered/Not Resolved]

NARRATIVE: CASE EVENT DATE: 20220601
